FAERS Safety Report 17573590 (Version 1)
Quarter: 2020Q1

REPORT INFORMATION
  Report Type: Report from Study
  Country: CA (occurrence: CA)
  Receive Date: 20200323
  Receipt Date: 20200323
  Transmission Date: 20200409
  Serious: Yes (Other)
  Sender: FDA-Public Use
  Company Number: CA-NALPROPION PHARMACEUTICALS INC.-2020-009927

PATIENT

DRUGS (8)
  1. CONTRAVE [Suspect]
     Active Substance: BUPROPION HYDROCHLORIDE\NALTREXONE HYDROCHLORIDE
     Dosage: 90 MG / 8 MG APPROX, 22/NOV/2019 TO 08/MAR/2020 (2 DOSAGE FORMS, 2 IN 1 D)
     Route: 048
     Dates: start: 201911, end: 202003
  2. CONTRAVE [Suspect]
     Active Substance: BUPROPION HYDROCHLORIDE\NALTREXONE HYDROCHLORIDE
     Dosage: 90 MG / 8 MG, APPROX 09/MAR/2020 TO ONGOING 2 TABS MORNING AND 1 TABS EVENING
     Route: 048
     Dates: start: 202003
  3. NPH INSULIN [Concomitant]
     Active Substance: INSULIN BEEF
     Indication: DIABETES MELLITUS
     Dosage: LUNCH TIME (15 IU) (ROUTE: INJECTION)
  4. CONTRAVE [Suspect]
     Active Substance: BUPROPION HYDROCHLORIDE\NALTREXONE HYDROCHLORIDE
     Dosage: 90 MG / 8 MG, APPROXIMATELY 08/NOV/2019 TO 14/NOV/2019 (1 DOSAGE FORMS, 2 IN 1 D)
     Route: 048
     Dates: start: 201911, end: 201911
  5. NOVORAPID [Concomitant]
     Active Substance: INSULIN ASPART
     Indication: DIABETES MELLITUS
     Dosage: 15CC/ 9CC (2 IN 1 D) (ROUTE: INJECTION)
  6. CONTRAVE [Suspect]
     Active Substance: BUPROPION HYDROCHLORIDE\NALTREXONE HYDROCHLORIDE
     Indication: WEIGHT CONTROL
     Dosage: 90 MG / 8 MG, APPROXIMATELY 01/NOV/2019 TO 07/NOV/2019 (1 DOSAGE FORMS, 1 IN 1 D)
     Route: 048
     Dates: start: 2019, end: 201911
  7. CONTRAVE [Suspect]
     Active Substance: BUPROPION HYDROCHLORIDE\NALTREXONE HYDROCHLORIDE
     Dosage: 90 MG / 8 MG APPROX, 15/NOV/2019 TO 21/NOV/2019 2 TAB IN THE MORNING AND ONE TAB IN THE EVENING
     Route: 048
     Dates: start: 201911, end: 201911
  8. LEVEMIR [Concomitant]
     Active Substance: INSULIN DETEMIR
     Indication: DIABETES MELLITUS
     Dosage: EVENING (8 IU) (ROUTE: INJECTION)

REACTIONS (3)
  - Constipation [Unknown]
  - Stubbornness [Unknown]
  - Condition aggravated [Unknown]
